FAERS Safety Report 10086925 (Version 2)
Quarter: 2014Q2

REPORT INFORMATION
  Report Type: Spontaneous
  Country: NO (occurrence: NO)
  Receive Date: 20140418
  Receipt Date: 20140506
  Transmission Date: 20141212
  Serious: Yes (Death, Hospitalization, Other)
  Sender: FDA-Public Use
  Company Number: PHHY2014NO044570

PATIENT
  Age: 86 Year
  Sex: Female

DRUGS (1)
  1. LETROZOLE [Suspect]
     Indication: BREAST CANCER

REACTIONS (7)
  - Death [Fatal]
  - Anaemia [Unknown]
  - Renal impairment [Recovered/Resolved]
  - Tumour marker increased [Unknown]
  - Hydronephrosis [Unknown]
  - Tumour haemorrhage [Unknown]
  - Metastases to bladder [Unknown]
